FAERS Safety Report 24579568 (Version 3)
Quarter: 2024Q4

REPORT INFORMATION
  Report Type: Spontaneous
  Country: US (occurrence: US)
  Receive Date: 20241105
  Receipt Date: 20241209
  Transmission Date: 20250115
  Serious: No
  Sender: BIOGEN
  Company Number: US-BIOGEN-2024BI01288473

PATIENT
  Sex: Male

DRUGS (3)
  1. VUMERITY [Suspect]
     Active Substance: DIROXIMEL FUMARATE
     Indication: Multiple sclerosis
     Dosage: ONE 231 MG CAPSULE, BY MOUTH, TWICE A DAY FOR 7 DAYS?START DATE 04-NOV-2024
     Route: 050
     Dates: start: 20241025
  2. VUMERITY [Suspect]
     Active Substance: DIROXIMEL FUMARATE
     Dosage: (TWO 231 MG CAPSULES, BY MOUTH, TWICE DAILY THEREAFTER PER PHARMACY ORDER
     Route: 050
     Dates: start: 2024
  3. VUMERITY [Suspect]
     Active Substance: DIROXIMEL FUMARATE
     Dosage: TAKING 1 CAPSULE TWICE DAILY WITH PM DOSE, DUE TO NOT ORDERING ON TIME
     Route: 050
     Dates: start: 20241203

REACTIONS (4)
  - Intentional product misuse [Unknown]
  - Memory impairment [Unknown]
  - Tremor [Unknown]
  - Communication disorder [Unknown]

NARRATIVE: CASE EVENT DATE: 20240101
